FAERS Safety Report 15652892 (Version 2)
Quarter: 2019Q1

REPORT INFORMATION
  Report Type: Spontaneous
  Country: AU (occurrence: AU)
  Receive Date: 20181123
  Receipt Date: 20190112
  Transmission Date: 20190417
  Serious: Yes (Other)
  Sender: FDA-Public Use
  Company Number: PHHY2018AU164774

PATIENT
  Sex: Male

DRUGS (2)
  1. IRBESARTAN SANDOZ [Suspect]
     Active Substance: IRBESARTAN
     Indication: PRODUCT USED FOR UNKNOWN INDICATION
     Dosage: 150 MG, UNK
     Route: 065
  2. IRBESARTAN SANDOZ [Suspect]
     Active Substance: IRBESARTAN
     Dosage: 300 MG, UNK
     Route: 065

REACTIONS (3)
  - Nausea [Unknown]
  - Syncope [Unknown]
  - Product quality issue [Unknown]
